FAERS Safety Report 10596216 (Version 1)
Quarter: 2014Q4

REPORT INFORMATION
  Report Type: Spontaneous
  Country: ES (occurrence: ES)
  Receive Date: 20141120
  Receipt Date: 20141120
  Transmission Date: 20150529
  Serious: Yes (Hospitalization)
  Sender: FDA-Public Use
  Company Number: ES-PERRIGO-14ES011189

PATIENT
  Age: 9 Year
  Sex: Male

DRUGS (1)
  1. IBUPROFEN 200 MG 604 [Suspect]
     Active Substance: IBUPROFEN
     Indication: TOOTHACHE
     Dosage: UNK, UNK
     Route: 065

REACTIONS (5)
  - Tubulointerstitial nephritis [Unknown]
  - Abdominal pain [Unknown]
  - Pyrexia [Unknown]
  - Malaise [Unknown]
  - Vomiting [Unknown]
